FAERS Safety Report 9642865 (Version 1)
Quarter: 2013Q4

REPORT INFORMATION
  Report Type: Spontaneous
  Country: FR (occurrence: FR)
  Receive Date: 20131024
  Receipt Date: 20131024
  Transmission Date: 20140711
  Serious: Yes (Other)
  Sender: FDA-Public Use
  Company Number: PHHY2013FR118472

PATIENT
  Sex: Female

DRUGS (2)
  1. ACLASTA [Suspect]
     Indication: OSTEOPOROSIS
     Dosage: UNK
     Route: 042
     Dates: start: 201210
  2. ACLASTA [Suspect]
     Dosage: UNK
     Route: 042
     Dates: start: 20131008

REACTIONS (2)
  - Hypertensive crisis [Recovered/Resolved]
  - Visual impairment [Recovering/Resolving]
